FAERS Safety Report 8726721 (Version 2)
Quarter: 2012Q4

REPORT INFORMATION
  Report Type: 
  Country: US (occurrence: US)
  Receive Date: 20120816
  Receipt Date: 20120906
  Transmission Date: 20130627
  Serious: Yes (Other)
  Sender: FDA-Public Use
  Company Number: US-BAYER-2012-082525

PATIENT
  Sex: Female

DRUGS (3)
  1. MIRENA [Suspect]
     Dosage: 20 mcg/24hr, CONT
     Route: 015
  2. MIRENA [Suspect]
     Dosage: 20 mcg/24hr, CONT
     Route: 015
  3. MIRENA [Suspect]
     Dosage: 20 mcg/24hr, CONT
     Route: 015
     Dates: start: 20120621

REACTIONS (8)
  - Device dislocation [None]
  - Device dislocation [None]
  - Device dislocation [None]
  - Frustration [None]
  - Feeling abnormal [None]
  - Vaginal haemorrhage [None]
  - Abdominal pain [None]
  - Discomfort [None]
